FAERS Safety Report 4290154-2 (Version None)
Quarter: 2004Q1

REPORT INFORMATION
  Report Type: 
  Country: None (occurrence: None)
  Receive Date: 20040209
  Receipt Date: 20040128
  Transmission Date: 20041129
  Serious: Yes (Other)
  Sender: FDA-Public Use
  Company Number: US-JNJFOC-20031001768

PATIENT
  Age: 85 Year
  Sex: Male
  Weight: 83.4619 kg

DRUGS (2)
  1. REMINYL [Suspect]
     Indication: DEMENTIA ALZHEIMER'S TYPE
     Dosage: ORAL
     Route: 048
  2. MEMANTINE [Concomitant]

REACTIONS (7)
  - GAIT DISTURBANCE [None]
  - HYPOGLYCAEMIA [None]
  - INSULIN C-PEPTIDE INCREASED [None]
  - LETHARGY [None]
  - LOSS OF CONSCIOUSNESS [None]
  - MEDICATION ERROR [None]
  - SPEECH DISORDER [None]
